FAERS Safety Report 25163413 (Version 1)
Quarter: 2025Q2

REPORT INFORMATION
  Report Type: Spontaneous
  Country: CN (occurrence: CN)
  Receive Date: 20250404
  Receipt Date: 20250404
  Transmission Date: 20250717
  Serious: Yes (Hospitalization, Other)
  Sender: NOVARTIS
  Company Number: CN-002147023-NVSC2025CN053326

PATIENT
  Age: 83 Year
  Sex: Male
  Weight: 97 kg

DRUGS (3)
  1. ENTRESTO [Suspect]
     Active Substance: SACUBITRIL\VALSARTAN
     Indication: Hypertension
     Dosage: 100.000 MG, QD
     Route: 048
     Dates: start: 20230601, end: 20250320
  2. RIVAROXABAN [Suspect]
     Active Substance: RIVAROXABAN
     Indication: Atrial fibrillation
     Dosage: 15.000 MG, QD
     Route: 048
     Dates: start: 20220728, end: 20250324
  3. ATORVASTATIN CALCIUM [Suspect]
     Active Substance: ATORVASTATIN CALCIUM
     Indication: Arteriosclerosis
     Dosage: 20.000 MG, QD
     Route: 048
     Dates: start: 20220728, end: 20250324

REACTIONS (32)
  - Renal impairment [Recovering/Resolving]
  - Neurodegenerative disorder [Unknown]
  - Demyelination [Unknown]
  - Nephrolithiasis [Unknown]
  - Basal ganglia infarction [Unknown]
  - PCO2 decreased [Unknown]
  - PO2 increased [Unknown]
  - Oxygen saturation increased [Unknown]
  - Respiratory disorder [Unknown]
  - Dyspnoea [Unknown]
  - Blood pH decreased [Unknown]
  - White blood cell count increased [Unknown]
  - Neutrophil percentage increased [Recovering/Resolving]
  - Procalcitonin increased [Unknown]
  - Carbon dioxide combining power decreased [Unknown]
  - Anion gap increased [Recovering/Resolving]
  - Mastoid effusion [Unknown]
  - Tachypnoea [Recovering/Resolving]
  - Disorganised speech [Recovered/Resolved]
  - Calculus bladder [Unknown]
  - Benign prostatic hyperplasia [Unknown]
  - Urinary sediment abnormal [Unknown]
  - C-reactive protein increased [Unknown]
  - Troponin I increased [Unknown]
  - Procalcitonin increased [Unknown]
  - N-terminal prohormone brain natriuretic peptide increased [Unknown]
  - Red blood cell sedimentation rate increased [Unknown]
  - Blood sodium decreased [Unknown]
  - Blood calcium decreased [Unknown]
  - Blood fibrinogen increased [Unknown]
  - Blood glucose increased [Unknown]
  - Acidosis [Unknown]

NARRATIVE: CASE EVENT DATE: 20250320
